FAERS Safety Report 4862256-0 (Version None)
Quarter: 2005Q4

REPORT INFORMATION
  Report Type: 
  Country: None (occurrence: None)
  Receive Date: 20051221
  Receipt Date: 20051214
  Transmission Date: 20060501
  Serious: Yes (Death, Hospitalization, Other)
  Sender: FDA-Public Use
  Company Number: DE-AVENTIS-200512894DE

PATIENT
  Age: 53 Year
  Sex: Female

DRUGS (5)
  1. TAXOTERE [Suspect]
     Indication: BREAST CANCER
     Route: 042
     Dates: start: 20051129, end: 20051129
  2. ADRIAMYCIN [Suspect]
     Indication: BREAST CANCER
     Route: 042
     Dates: start: 20051129, end: 20051129
  3. ENDOXAN [Suspect]
     Indication: BREAST CANCER
     Route: 042
     Dates: start: 20051129, end: 20051129
  4. UROMITEXAN [Concomitant]
     Route: 042
     Dates: start: 20051129, end: 20051129
  5. ARANESP [Concomitant]
     Dates: start: 20051129, end: 20051129

REACTIONS (5)
  - LEUKOPENIA [None]
  - MULTI-ORGAN FAILURE [None]
  - NAUSEA [None]
  - SEPSIS [None]
  - VOMITING [None]
